FAERS Safety Report 22379865 (Version 1)
Quarter: 2023Q2

REPORT INFORMATION
  Report Type: Report from Study
  Country: BE (occurrence: BE)
  Receive Date: 20230529
  Receipt Date: 20230529
  Transmission Date: 20230721
  Serious: Yes (Death, Other)
  Sender: FDA-Public Use
  Company Number: BE-PFIZER INC-PV202300092469

PATIENT

DRUGS (5)
  1. ENCORAFENIB [Suspect]
     Active Substance: ENCORAFENIB
     Indication: Colorectal cancer
     Dosage: 300 MG, ONCE DAILY FOR 28 DAYS CYCLES
     Route: 048
  2. BINIMETINIB [Suspect]
     Active Substance: BINIMETINIB
     Indication: Colorectal cancer
     Dosage: 45 MG, TWICE DAILY FOR 28 DAYS CYCLES
     Route: 048
  3. CETUXIMAB [Suspect]
     Active Substance: CETUXIMAB
     Indication: Colorectal cancer
     Dosage: 400 MG/M2, ONCE ON DAY 1 OF CYCLE 1
     Route: 042
  4. CETUXIMAB [Suspect]
     Active Substance: CETUXIMAB
     Dosage: 250 MG/M2, WEEKLY ONCE WEEKLY FOR THE FIRST SEVEN CYCLES
     Route: 042
  5. CETUXIMAB [Suspect]
     Active Substance: CETUXIMAB
     Dosage: 500 MG/M2, ONCE ON DAYS 1 AND 15 FROM CYCLE 8 ONWARD
     Route: 042

REACTIONS (1)
  - Acute kidney injury [Fatal]
